FAERS Safety Report 4618360-5 (Version None)
Quarter: 2005Q1

REPORT INFORMATION
  Report Type: 
  Country: None (occurrence: None)
  Receive Date: 20050323
  Receipt Date: 20050310
  Transmission Date: 20050727
  Serious: Yes (Other)
  Sender: FDA-Public Use
  Company Number: 2005045208

PATIENT
  Age: 56 Year
  Sex: Male

DRUGS (1)
  1. TOLTERODINE TARTRATE [Suspect]
     Indication: MICTURITION URGENCY
     Dosage: 2 MG (1 MG, BID), ORAL
     Route: 048
     Dates: start: 20041223

REACTIONS (2)
  - HYPERTENSION [None]
  - PALPITATIONS [None]
